FAERS Safety Report 15641777 (Version 2)
Quarter: 2018Q4

REPORT INFORMATION
  Report Type: Report from Study
  Country: IT (occurrence: IT)
  Receive Date: 20181121
  Receipt Date: 20181122
  Transmission Date: 20190205
  Serious: Yes (Hospitalization)
  Sender: FDA-Public Use
  Company Number: IT-TEVA-2018-IT-976577

PATIENT
  Age: 2 Year
  Sex: Male
  Weight: 14 kg

DRUGS (2)
  1. MICROPAM 5 MG/2,5 ML SOLUZIONE RETTALE [Suspect]
     Active Substance: DIAZEPAM
     Indication: PETIT MAL EPILEPSY
     Dosage: STRENGTH:5 MG/2.5 ML
     Route: 054
     Dates: start: 20180806, end: 20180806
  2. MIDAZOLAM [Suspect]
     Active Substance: MIDAZOLAM HYDROCHLORIDE
     Indication: PETIT MAL EPILEPSY
     Route: 042
     Dates: start: 20180806, end: 20180806

REACTIONS (1)
  - Sopor [Recovered/Resolved]

NARRATIVE: CASE EVENT DATE: 20180806
